FAERS Safety Report 4842600-0 (Version None)
Quarter: 2005Q4

REPORT INFORMATION
  Report Type: 
  Country: None (occurrence: None)
  Receive Date: 20051201
  Receipt Date: 20050520
  Transmission Date: 20060501
  Serious: Yes (Hospitalization, Other)
  Sender: FDA-Public Use
  Company Number: GB-GLAXOSMITHKLINE-B0381809A

PATIENT
  Age: 67 Year
  Sex: Male
  Weight: 94 kg

DRUGS (4)
  1. AVANDIA [Suspect]
     Indication: DIABETES MELLITUS NON-INSULIN-DEPENDENT
     Route: 048
     Dates: start: 20050510
  2. SIMVASTATIN [Concomitant]
     Indication: DIABETES MELLITUS
     Dates: start: 20040329
  3. METFORMIN [Concomitant]
     Indication: DIABETES MELLITUS
     Dates: start: 20040320
  4. UNSPECIFIED MEDICATION [Concomitant]
     Indication: MYOCARDIAL ISCHAEMIA

REACTIONS (4)
  - ALANINE AMINOTRANSFERASE INCREASED [None]
  - BLOOD BILIRUBIN INCREASED [None]
  - JAUNDICE [None]
  - MALAISE [None]
